FAERS Safety Report 4882783-X (Version None)
Quarter: 2006Q1

REPORT INFORMATION
  Report Type: 
  Country: None (occurrence: None)
  Receive Date: 20060117
  Receipt Date: 20060109
  Transmission Date: 20060701
  Serious: Yes (Death, Other)
  Sender: FDA-Public Use
  Company Number: US-JNJFOC-20040502832

PATIENT
  Sex: Female
  Weight: 55 kg

DRUGS (17)
  1. DURAGESIC-100 [Suspect]
     Route: 062
  2. DURAGESIC-100 [Suspect]
     Route: 062
  3. DURAGESIC-100 [Suspect]
     Route: 062
  4. DURAGESIC-100 [Suspect]
     Route: 062
  5. DURAGESIC-100 [Suspect]
     Route: 062
  6. DURAGESIC-100 [Suspect]
     Route: 062
  7. NEURONTIN [Suspect]
  8. EFFEXOR [Suspect]
     Indication: DEPRESSION
  9. ATENOLOL [Concomitant]
  10. LORAZEPAM [Concomitant]
  11. FLEXERIL [Concomitant]
  12. BEXTRA [Concomitant]
  13. TEMAZEPAM [Concomitant]
  14. TOPAMAX [Concomitant]
  15. AMBIEN [Concomitant]
  16. ZYBAN [Concomitant]
  17. OXYCONTIN [Concomitant]
     Route: 048

REACTIONS (63)
  - AMNESIA [None]
  - APNOEA [None]
  - ARTHRALGIA [None]
  - ASPIRATION [None]
  - ASTHENIA [None]
  - BACK PAIN [None]
  - BLOOD PRESSURE IMMEASURABLE [None]
  - BLOOD URINE PRESENT [None]
  - BODY TEMPERATURE INCREASED [None]
  - BREAKTHROUGH PAIN [None]
  - BURN INFECTION [None]
  - CARDIAC ARREST [None]
  - CARDIO-RESPIRATORY ARREST [None]
  - CELL DEATH [None]
  - CHILLS [None]
  - COMA [None]
  - COMPLETED SUICIDE [None]
  - DEHYDRATION [None]
  - DEPRESSION [None]
  - DIZZINESS [None]
  - DRUG INEFFECTIVE [None]
  - DRUG TOXICITY [None]
  - FALL [None]
  - GASTRIC DISORDER [None]
  - HAEMATEMESIS [None]
  - HEADACHE [None]
  - HEPATIC CONGESTION [None]
  - INCISION SITE COMPLICATION [None]
  - INFECTION [None]
  - INSOMNIA [None]
  - INTERVERTEBRAL DISC PROTRUSION [None]
  - LIVIDITY [None]
  - LOSS OF CONSCIOUSNESS [None]
  - MEDICAL DEVICE COMPLICATION [None]
  - MUSCLE SPASMS [None]
  - MUSCULOSKELETAL STIFFNESS [None]
  - NARCOTIC INTOXICATION [None]
  - NAUSEA [None]
  - NECK PAIN [None]
  - OVERDOSE [None]
  - PAIN [None]
  - PAIN IN EXTREMITY [None]
  - PERIPHERAL COLDNESS [None]
  - PETECHIAE [None]
  - PHARMACEUTICAL PRODUCT COMPLAINT [None]
  - POOR QUALITY DRUG ADMINISTERED [None]
  - POSTOPERATIVE WOUND INFECTION [None]
  - PRECANCEROUS CELLS PRESENT [None]
  - PULMONARY CONGESTION [None]
  - PULSE ABSENT [None]
  - RASH [None]
  - RESPIRATORY ARREST [None]
  - RHINORRHOEA [None]
  - SINUS HEADACHE [None]
  - SMEAR CERVIX ABNORMAL [None]
  - SUICIDE ATTEMPT [None]
  - THERAPEUTIC RESPONSE DECREASED [None]
  - THERMAL BURN [None]
  - ULNAR NERVE INJURY [None]
  - ULNAR NERVE PALSY [None]
  - UPPER RESPIRATORY TRACT INFECTION [None]
  - VOMITING [None]
  - WOUND DRAINAGE [None]
